FAERS Safety Report 4487837-8 (Version None)
Quarter: 2004Q4

REPORT INFORMATION
  Report Type: 
  Country: None (occurrence: None)
  Receive Date: 20041027
  Receipt Date: 20041027
  Transmission Date: 20050328
  Serious: Yes (Hospitalization)
  Sender: FDA-Public Use
  Company Number: None

PATIENT
  Age: 44 Year
  Sex: Male
  Weight: 85.2762 kg

DRUGS (2)
  1. ROBITUSSIN DM (GUAIFENESIN /DEXTROMETHORPHAN ) [Suspect]
     Dosage: 2 BOTTLES PER DAY
  2. DIVALPROEX 500 MG EC [Suspect]
     Dosage: 500 MG TID

REACTIONS (5)
  - BLOOD ELECTROLYTES DECREASED [None]
  - OVERDOSE [None]
  - POLYDIPSIA [None]
  - POLYURIA [None]
  - SYNCOPE [None]
